FAERS Safety Report 12711975 (Version 1)
Quarter: 2016Q3

REPORT INFORMATION
  Report Type: Spontaneous
  Country: KG (occurrence: KG)
  Receive Date: 20160902
  Receipt Date: 20160902
  Transmission Date: 20161109
  Serious: Yes (Other)
  Sender: FDA-Public Use
  Company Number: KG-BAYER-2016-165888

PATIENT
  Age: 34 Year
  Sex: Female
  Weight: 85 kg

DRUGS (12)
  1. ILOPROST [Suspect]
     Active Substance: ILOPROST
     Dosage: 2.5 MG, 5ID
  2. ROSUVASTATIN CALCIUM. [Concomitant]
     Active Substance: ROSUVASTATIN CALCIUM
     Dosage: 5 MG, QD
  3. ILOPROST [Suspect]
     Active Substance: ILOPROST
     Dosage: 5 MG, QID
  4. XARELTO [Suspect]
     Active Substance: RIVAROXABAN
     Dosage: 10 MG, QD
  5. DIGOXIN. [Concomitant]
     Active Substance: DIGOXIN
     Dosage: 0.25 DF, BID
  6. TRIMETAZIDINE [Concomitant]
     Active Substance: TRIMETAZIDINE
     Dosage: 35 MG, BID
  7. ILOPROST [Suspect]
     Active Substance: ILOPROST
     Dosage: UNK
     Dates: start: 20160625, end: 20160824
  8. GYNO-TARDYFERON [FERROUS SULFATE,FOLIC ACID] [Concomitant]
     Dosage: 1 DF, BID
  9. TORASEMIDE [Concomitant]
     Active Substance: TORSEMIDE
     Dosage: 10 MG, QD
  10. CARBAMAZEPINE. [Concomitant]
     Active Substance: CARBAMAZEPINE
     Dosage: 0.5 DF, QD
  11. ILOPROST [Suspect]
     Active Substance: ILOPROST
     Dosage: 5 MG, 5ID
  12. RIOCIGUAT (GUANYLATE CYCLASE STIMULATOR) [Suspect]
     Active Substance: RIOCIGUAT
     Dosage: 2 MG, TID

REACTIONS (9)
  - Loss of consciousness [None]
  - Skin discolouration [None]
  - Vomiting [None]
  - Feeling abnormal [None]
  - Palpitations [None]
  - Product use issue [None]
  - Chest pain [None]
  - Nausea [None]
  - Feeling cold [None]
